FAERS Safety Report 6417797-1 (Version None)
Quarter: 2009Q4

REPORT INFORMATION
  Report Type: 
  Country: None (occurrence: None)
  Receive Date: 20091027
  Receipt Date: 20091027
  Transmission Date: 20100525
  Serious: Yes (Life-Threatening)
  Sender: FDA-Public Use
  Company Number: None

PATIENT
  Age: 59 Year
  Sex: Male
  Weight: 145 kg

DRUGS (16)
  1. HEPARIN [Suspect]
     Indication: COAGULATION TEST ABNORMAL
     Dosage: 500UNITS/HR. IV
     Route: 042
     Dates: start: 20090829, end: 20090831
  2. ASPIRIN [Concomitant]
  3. FUROSEMIDE [Concomitant]
  4. DOCUSATE [Concomitant]
  5. METRONIDAZOLE [Concomitant]
  6. MINERAL OIL OPHTHALMIC OINT [Concomitant]
  7. MULTI-VITAMIN [Concomitant]
  8. NYSTATIN [Concomitant]
  9. POWDER ZOSYN [Concomitant]
  10. RANITIDINE [Concomitant]
  11. XENADERM [Concomitant]
  12. VANCOMYCIN [Concomitant]
  13. INSULIN [Concomitant]
  14. EPINEPHRINE DRIP [Concomitant]
  15. NOREPI DRIP [Concomitant]
  16. PHENYLEPHRINE [Concomitant]

REACTIONS (1)
  - HEPARIN-INDUCED THROMBOCYTOPENIA [None]
